FAERS Safety Report 5120303-5 (Version None)
Quarter: 2006Q4

REPORT INFORMATION
  Report Type: 
  Country: None (occurrence: None)
  Receive Date: 20061004
  Receipt Date: 20060925
  Transmission Date: 20070319
  Serious: Yes (Other)
  Sender: FDA-Public Use
  Company Number: US-JNJFOC-20060906407

PATIENT
  Sex: Female
  Weight: 80.74 kg

DRUGS (6)
  1. MOTRIN IB [Suspect]
     Route: 048
  2. MOTRIN IB [Suspect]
     Indication: ARTHRALGIA
     Route: 048
  3. ZAROXOLYN [Concomitant]
     Indication: DIURETIC THERAPY
  4. PHENOBARBITAL TAB [Concomitant]
     Indication: CONVULSION
  5. ASPIRIN [Concomitant]
  6. ALBUTEROL [Concomitant]
     Indication: ASTHMA

REACTIONS (4)
  - FEELING ABNORMAL [None]
  - HEADACHE [None]
  - HEMIPARESIS [None]
  - SENSORY DISTURBANCE [None]
